FAERS Safety Report 5297950-3 (Version None)
Quarter: 2007Q2

REPORT INFORMATION
  Report Type: 
  Country: None (occurrence: None)
  Receive Date: 20070416
  Receipt Date: 20070403
  Transmission Date: 20071010
  Serious: Yes (Other)
  Sender: FDA-Public Use
  Company Number: AE-GLAXOSMITHKLINE-B0466099A

PATIENT
  Age: 19 Year
  Sex: Male

DRUGS (7)
  1. ZOVIRAX [Suspect]
     Route: 061
     Dates: start: 20040307, end: 20040308
  2. DICLOFENAC [Suspect]
     Indication: PAIN
     Route: 048
     Dates: start: 20040307, end: 20040308
  3. VITAMIN B COMPLEX CAP [Suspect]
     Route: 048
  4. FUCIDINE CAP [Concomitant]
  5. LOTRIDERM [Concomitant]
  6. ATODERM [Concomitant]
  7. ROACCUTANE [Concomitant]

REACTIONS (1)
  - INFERTILITY [None]
